FAERS Safety Report 6540622-5 (Version None)
Quarter: 2010Q1

REPORT INFORMATION
  Report Type: 
  Country: None (occurrence: None)
  Receive Date: 20100118
  Receipt Date: 20100111
  Transmission Date: 20100710
  Serious: No
  Sender: FDA-Public Use
  Company Number: BR-ROCHE-678920

PATIENT
  Sex: Female

DRUGS (2)
  1. ROACUTAN [Suspect]
     Indication: ACNE
     Dosage: SECOND TREATMENT; ROUTE:ORAL; FORM:CAPSULE;STRENGTH:20 MG
     Route: 065
     Dates: start: 20090901, end: 20091206
  2. ROACUTAN [Suspect]
     Dosage: FIRST TREATMENT
     Route: 065

REACTIONS (2)
  - NO ADVERSE EVENT [None]
  - PREGNANCY [None]
